FAERS Safety Report 13937521 (Version 1)
Quarter: 2017Q3

REPORT INFORMATION
  Report Type: Spontaneous
  Country: JP (occurrence: JP)
  Receive Date: 20170905
  Receipt Date: 20170905
  Transmission Date: 20171127
  Serious: Yes (Other)
  Sender: FDA-Public Use
  Company Number: JP-SA-2017SA161697

PATIENT
  Age: 8 Year
  Sex: Female

DRUGS (1)
  1. LEVOCETIRIZINE [Suspect]
     Active Substance: LEVOCETIRIZINE
     Indication: RHINITIS ALLERGIC
     Route: 048
     Dates: start: 20140705, end: 20160219

REACTIONS (2)
  - Precocious puberty [Recovered/Resolved]
  - Premature menarche [Recovered/Resolved]

NARRATIVE: CASE EVENT DATE: 20160211
